FAERS Safety Report 9380139 (Version 1)
Quarter: 2013Q3

REPORT INFORMATION
  Report Type: Spontaneous
  Country: SI (occurrence: SI)
  Receive Date: 20130702
  Receipt Date: 20130702
  Transmission Date: 20140515
  Serious: Yes (Hospitalization)
  Sender: FDA-Public Use
  Company Number: SI-PFIZER INC-2013189816

PATIENT
  Age: 41 Year
  Sex: Female

DRUGS (5)
  1. VENLAFAXINE HCL [Suspect]
     Indication: DEPRESSION
     Dosage: 2100 MG
  2. VENLAFAXINE HCL [Suspect]
     Indication: PSYCHOTIC DISORDER DUE TO A GENERAL MEDICAL CONDITION
  3. LITHIUM [Suspect]
     Indication: DEPRESSION
     Dosage: 30 G
  4. LITHIUM [Suspect]
     Indication: PSYCHOTIC DISORDER DUE TO A GENERAL MEDICAL CONDITION
  5. CARVEDILOL [Concomitant]
     Indication: HYPERTENSION
     Dosage: UNK

REACTIONS (9)
  - Overdose [Unknown]
  - Toxicity to various agents [Recovered/Resolved]
  - Suicide attempt [Unknown]
  - Disorientation [Recovered/Resolved]
  - Confusional state [Recovered/Resolved]
  - Tachypnoea [Unknown]
  - Dysphagia [Recovered/Resolved]
  - Hypothyroidism [Unknown]
  - Depression [Recovering/Resolving]
